FAERS Safety Report 11525665 (Version 1)
Quarter: 2015Q3

REPORT INFORMATION
  Report Type: Spontaneous
  Country: US (occurrence: US)
  Receive Date: 20150918
  Receipt Date: 20150918
  Transmission Date: 20151125
  Serious: Yes (Hospitalization)
  Sender: FDA-Public Use
  Company Number: US-GILEAD-2015-0170857

PATIENT
  Sex: Female

DRUGS (2)
  1. CAYSTON [Suspect]
     Active Substance: AZTREONAM
     Indication: PRODUCT USED FOR UNKNOWN INDICATION
     Dosage: UNK, CONTINUOUS ALTERNATING THERAPY WITH BETHKIS
     Route: 065
  2. BETHKIS [Concomitant]
     Active Substance: TOBRAMYCIN
     Indication: PRODUCT USED FOR UNKNOWN INDICATION
     Dosage: CONTINUOUS ALTERNATING THERAPY WITH CAYSTON
     Route: 065

REACTIONS (3)
  - Drug dose omission [Unknown]
  - Cough [Unknown]
  - Sputum increased [Unknown]
